FAERS Safety Report 10218541 (Version 2)
Quarter: 2014Q2

REPORT INFORMATION
  Report Type: Other
  Country: CA (occurrence: CA)
  Receive Date: 20140605
  Receipt Date: 20140605
  Transmission Date: 20141212
  Serious: Yes (Hospitalization, Other)
  Sender: FDA-Public Use
  Company Number: CA-GSKPPD-2014GSK013847

PATIENT
  Age: 59 Year
  Sex: Female

DRUGS (2)
  1. AVANDIA [Suspect]
     Indication: DIABETES MELLITUS
     Dosage: DATE OF AVANDIA USE COULD NOT BE CONFIRMED IN RECORDS REVIEWED
     Route: 048
  2. ASPIRIN [Concomitant]

REACTIONS (4)
  - Atrial fibrillation [Recovered/Resolved]
  - Acute coronary syndrome [None]
  - Cardiac flutter [None]
  - Acute coronary syndrome [None]
